FAERS Safety Report 13689770 (Version 3)
Quarter: 2017Q3

REPORT INFORMATION
  Report Type: Report from Study
  Country: US (occurrence: US)
  Receive Date: 20170626
  Receipt Date: 20170721
  Transmission Date: 20171127
  Serious: Yes (Hospitalization, Other)
  Sender: FDA-Public Use
  Company Number: US-BAYER-2017-088048

PATIENT
  Age: 49 Year
  Sex: Female
  Weight: 58.5 kg

DRUGS (6)
  1. ADEMPAS [Suspect]
     Active Substance: RIOCIGUAT
     Indication: PULMONARY ARTERIAL HYPERTENSION
     Dosage: 2.5 MG, TID
     Route: 048
  2. ADEMPAS [Suspect]
     Active Substance: RIOCIGUAT
     Indication: PULMONARY ARTERIAL HYPERTENSION
     Dosage: 2 MG, TID
     Route: 048
  3. ADEMPAS [Suspect]
     Active Substance: RIOCIGUAT
     Indication: PULMONARY ARTERIAL HYPERTENSION
     Dosage: UNK
     Dates: start: 20160922
  4. ADEMPAS [Suspect]
     Active Substance: RIOCIGUAT
     Indication: PULMONARY ARTERIAL HYPERTENSION
     Dosage: 2.5 MG, BID
     Route: 048
  5. ADEMPAS [Suspect]
     Active Substance: RIOCIGUAT
     Indication: PULMONARY ARTERIAL HYPERTENSION
     Dosage: 2.5 MG, TID
     Route: 048
     Dates: start: 20170502
  6. OPSUMIT [Concomitant]
     Active Substance: MACITENTAN
     Dosage: UNK

REACTIONS (21)
  - Chest pain [Unknown]
  - Hypotension [Not Recovered/Not Resolved]
  - Oedema peripheral [None]
  - Gastrooesophageal reflux disease [None]
  - Nausea [None]
  - Fatigue [None]
  - Headache [None]
  - Dysphagia [None]
  - Vitamin D decreased [Unknown]
  - Cough [None]
  - Intentional product misuse [None]
  - Choking [Unknown]
  - Diarrhoea [Not Recovered/Not Resolved]
  - Dyspepsia [Unknown]
  - Dyspnoea [Not Recovered/Not Resolved]
  - Heart rate irregular [Unknown]
  - Fibrin D dimer increased [Unknown]
  - Abdominal distension [None]
  - Chest pain [Not Recovered/Not Resolved]
  - Dyspnoea [Unknown]
  - Dizziness [None]
